FAERS Safety Report 10225738 (Version 2)
Quarter: 2014Q2

REPORT INFORMATION
  Report Type: Spontaneous
  Country: US (occurrence: US)
  Receive Date: 20140609
  Receipt Date: 20140612
  Transmission Date: 20141212
  Serious: Yes (Hospitalization)
  Sender: FDA-Public Use
  Company Number: US-ONYX-2014-1252

PATIENT
  Age: 62 Year
  Sex: Male

DRUGS (2)
  1. KYPROLIS [Suspect]
     Indication: PLASMA CELL MYELOMA
     Route: 042
     Dates: start: 20130901
  2. REVLIMID [Concomitant]
     Indication: PLASMA CELL MYELOMA

REACTIONS (2)
  - Abscess [Not Recovered/Not Resolved]
  - Diverticulitis [Unknown]
